FAERS Safety Report 5125614-5 (Version None)
Quarter: 2006Q4

REPORT INFORMATION
  Report Type: 
  Country: None (occurrence: None)
  Receive Date: 20061012
  Receipt Date: 20060616
  Transmission Date: 20070319
  Serious: Yes (Death)
  Sender: FDA-Public Use
  Company Number: US-KINGPHARMUSA00001-K200600785

PATIENT
  Age: 51 Year
  Sex: Female
  Weight: 100 kg

DRUGS (15)
  1. SKELAXIN [Suspect]
     Dosage: 800 MG, TID
     Route: 048
  2. SEROQUEL [Suspect]
     Dosage: 300 MG, QHS
     Route: 048
  3. DOXYCYCLINE [Concomitant]
     Dosage: 100 MG, BID
     Route: 048
  4. PREMARIN [Concomitant]
     Dosage: .3 MG, QD
     Route: 048
  5. LASIX [Concomitant]
     Dosage: 40 MG, QOD
     Route: 048
  6. EFFEXOR XR [Concomitant]
     Dosage: 150 MG, QD
     Route: 048
  7. ZYRTEC [Concomitant]
     Dosage: 10 MG, QD
     Route: 048
  8. NAPROXEN [Concomitant]
     Dosage: 500 MG, BID
     Route: 048
  9. MICRO-K [Concomitant]
     Dosage: 8 MEQ, QOD WITH LASIX
     Route: 048
  10. FLAGYL [Concomitant]
     Dosage: 500 MG, BID
     Route: 048
  11. SPIRONOLACTONE [Concomitant]
     Dosage: 50 MG, BID
     Route: 048
  12. TRAZODONE HCL [Concomitant]
     Dosage: 100 MG, QHS
     Route: 048
  13. PARAFLEX [Concomitant]
     Dosage: 500 MG, QD
     Route: 048
  14. ALDARA [Concomitant]
     Dosage: 5 %, TIW
     Route: 061
  15. NICOTINE [Concomitant]
     Dosage: 21 MCG, QD
     Route: 062

REACTIONS (23)
  - ABDOMINAL DISTENSION [None]
  - ANAPHYLACTIC REACTION [None]
  - BODY TEMPERATURE INCREASED [None]
  - CARDIAC HYPERTROPHY [None]
  - CHOLELITHIASIS [None]
  - CYANOSIS [None]
  - DRUG HYPERSENSITIVITY [None]
  - DRUG LEVEL INCREASED [None]
  - DYSPNOEA [None]
  - FLUSHING [None]
  - HEPATIC CIRRHOSIS [None]
  - HYPERHIDROSIS [None]
  - HYPERTHERMIA MALIGNANT [None]
  - INCOHERENT [None]
  - INFLUENZA LIKE ILLNESS [None]
  - OVARIAN CYST [None]
  - PULMONARY OEDEMA [None]
  - RASH [None]
  - RASH PAPULAR [None]
  - SPLENOMEGALY [None]
  - TONGUE HAEMORRHAGE [None]
  - TRYPTASE INCREASED [None]
  - UNRESPONSIVE TO STIMULI [None]
